FAERS Safety Report 9700420 (Version 1)
Quarter: 2013Q4

REPORT INFORMATION
  Report Type: Report from Study
  Country: US (occurrence: US)
  Receive Date: 20131121
  Receipt Date: 20131121
  Transmission Date: 20140711
  Serious: Yes (Other)
  Sender: FDA-Public Use
  Company Number: US-JNJFOC-20131109325

PATIENT
  Sex: Male

DRUGS (10)
  1. SIMPONI [Suspect]
     Indication: RHEUMATOID ARTHRITIS
     Route: 058
  2. SIMPONI [Suspect]
     Indication: RHEUMATOID ARTHRITIS
     Route: 058
     Dates: start: 201311
  3. CHANTIX [Concomitant]
     Route: 048
  4. CHANTIX [Concomitant]
     Route: 048
  5. CHANTIX [Concomitant]
     Route: 048
  6. ARAVA [Concomitant]
     Route: 048
  7. ADVIL [Concomitant]
     Route: 048
  8. MOTRIN [Concomitant]
     Route: 048
  9. NEXIUM [Concomitant]
     Route: 048
  10. ACETAMINOPHEN [Concomitant]
     Route: 048

REACTIONS (4)
  - Pulmonary mass [Unknown]
  - Musculoskeletal chest pain [Unknown]
  - Pain in extremity [Unknown]
  - Musculoskeletal stiffness [Unknown]
